FAERS Safety Report 11210271 (Version 6)
Quarter: 2017Q2

REPORT INFORMATION
  Report Type: Spontaneous
  Country: US (occurrence: US)
  Receive Date: 20150622
  Receipt Date: 20170609
  Transmission Date: 20170829
  Serious: Yes (Hospitalization, Other)
  Sender: FDA-Public Use
  Company Number: US-ASTELLAS-2015US007180

PATIENT
  Age: 68 Year
  Sex: Female

DRUGS (3)
  1. VESICARE [Suspect]
     Active Substance: SOLIFENACIN SUCCINATE
     Indication: MICTURITION URGENCY
     Route: 048
     Dates: start: 2010
  2. VESICARE [Suspect]
     Active Substance: SOLIFENACIN SUCCINATE
     Dosage: UNK, UNKNOWN FREQ.
     Route: 048
     Dates: end: 20150202
  3. VESICARE [Suspect]
     Active Substance: SOLIFENACIN SUCCINATE
     Indication: HYPERTONIC BLADDER
     Dosage: UNK UNK, UNKNOWN FREQ.
     Route: 048
     Dates: start: 20071029

REACTIONS (12)
  - Femur fracture [Unknown]
  - Cholecystectomy [Recovering/Resolving]
  - Bladder cancer [Unknown]
  - Pancreatitis relapsing [Recovering/Resolving]
  - Osteoarthritis [Unknown]
  - Drug ineffective [Unknown]
  - Diabetes mellitus [Unknown]
  - Upper limb fracture [Not Recovered/Not Resolved]
  - Elbow operation [Not Recovered/Not Resolved]
  - Fall [Unknown]
  - Limb operation [Unknown]
  - Cyst [Recovering/Resolving]

NARRATIVE: CASE EVENT DATE: 2013
